FAERS Safety Report 8491674-7 (Version None)
Quarter: 2012Q3

REPORT INFORMATION
  Report Type: 
  Country: None (occurrence: None)
  Receive Date: 20120706
  Receipt Date: 20120626
  Transmission Date: 20120928
  Serious: Yes (Hospitalization)
  Sender: FDA-Public Use
  Company Number: US-BRISTOL-MYERS SQUIBB COMPANY-16714826

PATIENT
  Age: 64 Year
  Sex: Female

DRUGS (6)
  1. ACCUPRIL [Concomitant]
  2. METOPROLOL [Concomitant]
  3. FUROSEMIDE [Concomitant]
  4. ABILIFY [Suspect]
     Indication: DEPRESSION
  5. POTASSIUM CHLORIDE [Concomitant]
     Dosage: 20 MEQ DAILY
  6. LEXAPRO [Concomitant]

REACTIONS (2)
  - CARDIAC FAILURE CONGESTIVE [None]
  - URINE AMPHETAMINE POSITIVE [None]
